FAERS Safety Report 11721419 (Version 1)
Quarter: 2015Q4

REPORT INFORMATION
  Report Type: Spontaneous
  Country: US (occurrence: None)
  Receive Date: 20151104
  Receipt Date: 20151104
  Transmission Date: 20160304
  Serious: Yes (Hospitalization)
  Sender: FDA-Public Use
  Company Number: M2015-049A

PATIENT
  Age: 50 Year
  Sex: Female

DRUGS (10)
  1. PEPCID [Concomitant]
     Active Substance: FAMOTIDINE
  2. DILACOR XR [Concomitant]
     Active Substance: DILTIAZEM HYDROCHLORIDE
  3. CLARITIN [Concomitant]
     Active Substance: LORATADINE
  4. SINGULAIR [Concomitant]
     Active Substance: MONTELUKAST SODIUM
  5. CANDIDA ALBICANS, 1:10 W/V, JUBILANT HOLLISTERSTIER [Suspect]
     Active Substance: ALLERGENIC EXTRACT- CANDIDA
     Indication: OFF LABEL USE
     Dates: start: 20151009
  6. ZOLOFT [Concomitant]
     Active Substance: SERTRALINE HYDROCHLORIDE
  7. XOLAIR [Concomitant]
     Active Substance: OMALIZUMAB
  8. CANDIDA ALBICANS, 1:10 W/V, JUBILANT HOLLISTERSTIER [Suspect]
     Active Substance: ALLERGENIC EXTRACT- CANDIDA
     Indication: TUBERCULIN TEST
     Dates: start: 20151009
  9. PRILOSEC [Concomitant]
     Active Substance: OMEPRAZOLE MAGNESIUM
  10. DIOVAN [Concomitant]
     Active Substance: VALSARTAN

REACTIONS (1)
  - Cellulitis [None]

NARRATIVE: CASE EVENT DATE: 20151009
